FAERS Safety Report 17919395 (Version 1)
Quarter: 2020Q2

REPORT INFORMATION
  Report Type: Spontaneous
  Country: US (occurrence: US)
  Receive Date: 20200619
  Receipt Date: 20200619
  Transmission Date: 20200714
  Serious: No
  Sender: FDA-Public Use
  Company Number: US-CATALYST PHARMACEUTICALS, INC-2020CAT00140

PATIENT
  Sex: Female
  Weight: 86.17 kg

DRUGS (3)
  1. FIRDAPSE [Suspect]
     Active Substance: AMIFAMPRIDINE
     Dosage: 15 MG, 3X/DAY
     Route: 048
     Dates: start: 20190920
  2. FIRDAPSE [Suspect]
     Active Substance: AMIFAMPRIDINE
     Dosage: 15 MG, 3X/DAY
     Route: 048
     Dates: start: 20200218
  3. IBUPROFEN. [Concomitant]
     Active Substance: IBUPROFEN
     Dosage: UNK

REACTIONS (6)
  - Head discomfort [Recovered/Resolved]
  - Sleep disorder [Recovered/Resolved]
  - Lacrimation increased [Not Recovered/Not Resolved]
  - Limb discomfort [Recovered/Resolved]
  - Insomnia [Unknown]
  - Dyspnoea [Recovered/Resolved]
